FAERS Safety Report 8583770-0 (Version None)
Quarter: 2012Q3

REPORT INFORMATION
  Report Type: 
  Country: None (occurrence: None)
  Receive Date: 20120810
  Receipt Date: 20120726
  Transmission Date: 20120928
  Serious: Yes (Hospitalization, Disabling, Other)
  Sender: FDA-Public Use
  Company Number: US-MSD-1203USA03414

PATIENT

DRUGS (15)
  1. LIPITOR [Concomitant]
     Indication: HYPERLIPIDAEMIA
     Dosage: 10 MG, QD
  2. VITAMIN D [Concomitant]
     Dosage: 1 U, QD
     Dates: start: 20020101
  3. DICYCLOMINE HYDROCHLORIDE [Concomitant]
     Indication: IRRITABLE BOWEL SYNDROME
     Dates: start: 20070608
  4. CALCIUM (UNSPECIFIED) [Concomitant]
     Dosage: 2 U, QD
     Dates: start: 19870101
  5. FOSAMAX [Suspect]
     Dosage: UNK
     Route: 048
     Dates: start: 20000110
  6. MK-9278 [Concomitant]
     Dosage: 1 U, QD
     Dates: start: 19700101
  7. CRESTOR [Concomitant]
     Indication: HYPERLIPIDAEMIA
  8. ALENDRONATE SODIUM [Suspect]
     Dosage: 70 MG, UNK
     Dates: start: 20080627
  9. LESCOL XL [Concomitant]
     Indication: HYPERLIPIDAEMIA
     Dosage: 80 MG, QD
  10. RALOXIFENE HYDROCHLORIDE [Concomitant]
     Indication: OSTEOPOROSIS
     Dosage: 60 MG, QOD
  11. ZETIA [Concomitant]
     Indication: HYPERLIPIDAEMIA
     Dosage: 10 MG, QD
     Route: 048
  12. VYTORIN [Concomitant]
     Indication: HYPERLIPIDAEMIA
     Route: 048
  13. FOSAMAX [Suspect]
     Indication: OSTEOPOROSIS
     Dosage: 10 MG, QD
     Route: 048
     Dates: start: 19970101, end: 20090507
  14. FOSAMAX [Suspect]
     Dosage: 70 MG, QW
     Route: 048
     Dates: start: 20010210
  15. PAXIL [Concomitant]
     Indication: IRRITABLE BOWEL SYNDROME
     Dosage: 10 MG, QD

REACTIONS (46)
  - BRONCHITIS [None]
  - ECCHYMOSIS [None]
  - NEPHROLITHIASIS [None]
  - LIMB INJURY [None]
  - FOOT DEFORMITY [None]
  - BACK PAIN [None]
  - ABDOMINAL PAIN UPPER [None]
  - HYPERTENSION [None]
  - CHOLELITHIASIS [None]
  - PATELLOFEMORAL PAIN SYNDROME [None]
  - BUNDLE BRANCH BLOCK RIGHT [None]
  - BREAST CALCIFICATIONS [None]
  - PLANTAR FASCIITIS [None]
  - FEMUR FRACTURE [None]
  - ARTERIOSCLEROSIS [None]
  - JOINT DISLOCATION [None]
  - VITAMIN D DEFICIENCY [None]
  - SKIN LESION [None]
  - BURSITIS [None]
  - LOW TURNOVER OSTEOPATHY [None]
  - ARTHRITIS [None]
  - ADVERSE EVENT [None]
  - SKIN PAPILLOMA [None]
  - PAIN OF SKIN [None]
  - TOOTH DISORDER [None]
  - INFECTION [None]
  - ASTHMA [None]
  - PAIN [None]
  - DEEP VEIN THROMBOSIS [None]
  - PARAESTHESIA [None]
  - EXOSTOSIS [None]
  - OSTEOPOROSIS [None]
  - ANXIETY [None]
  - CHONDROPATHY [None]
  - ANKLE FRACTURE [None]
  - OSTEOARTHRITIS [None]
  - STRESS FRACTURE [None]
  - FOOT FRACTURE [None]
  - DYSPHONIA [None]
  - APPENDICITIS [None]
  - ADHESION [None]
  - ARRHYTHMIA [None]
  - SCOLIOSIS [None]
  - BONE DISORDER [None]
  - NEUROMA [None]
  - ARTHRALGIA [None]
